FAERS Safety Report 8827784 (Version 1)
Quarter: 2012Q4

REPORT INFORMATION
  Report Type: 
  Country: US (occurrence: US)
  Receive Date: 20121008
  Receipt Date: 20121008
  Transmission Date: 20130627
  Serious: No
  Sender: FDA-Public Use
  Company Number: US-PFIZER INC-2012247633

PATIENT
  Age: 52 Year
  Sex: Female
  Weight: 56.69 kg

DRUGS (5)
  1. CHANTIX [Suspect]
     Indication: SMOKING CESSATION THERAPY
     Dosage: 0.5 mg, daily
  2. CHANTIX [Suspect]
     Dosage: UNK
     Dates: end: 2012
  3. PREDNISONE [Concomitant]
     Indication: DECREASED APPETITE
     Dosage: 10 mg, daily
  4. PERIACTIN [Concomitant]
     Indication: DECREASED APPETITE
     Dosage: 4 mg, 2x/day
  5. ZANTAC [Concomitant]
     Indication: GASTRIC DISORDER
     Dosage: 150 mg, 3x/day

REACTIONS (2)
  - Weight increased [Unknown]
  - Increased appetite [Unknown]
